FAERS Safety Report 5424740-0 (Version None)
Quarter: 2007Q3

REPORT INFORMATION
  Report Type: 
  Country: None (occurrence: None)
  Receive Date: 20070822
  Receipt Date: 20070810
  Transmission Date: 20080115
  Serious: Yes (Hospitalization)
  Sender: FDA-Public Use
  Company Number: 8026002

PATIENT
  Age: 57 Year
  Sex: Male

DRUGS (4)
  1. KEPPRA [Suspect]
     Indication: EPILEPSY
     Dosage: 2000 MG /D
  2. DILANTIN [Suspect]
     Indication: EPILEPSY
     Dosage: 400 MG /D
  3. ZONEGRAN [Suspect]
     Indication: EPILEPSY
     Dosage: 600 MG /D
  4. LAMICTAL [Suspect]
     Indication: EPILEPSY
     Dosage: 400 MG /D

REACTIONS (1)
  - CLEAR CELL CARCINOMA OF THE KIDNEY [None]
